FAERS Safety Report 4372302-9 (Version None)
Quarter: 2004Q2

REPORT INFORMATION
  Report Type: 
  Country: None (occurrence: None)
  Receive Date: 20040602
  Receipt Date: 20040513
  Transmission Date: 20050107
  Serious: Yes (Hospitalization)
  Sender: FDA-Public Use
  Company Number: 2004PK00886

PATIENT
  Age: 69 Year
  Sex: Female

DRUGS (5)
  1. FASLODEX [Suspect]
     Indication: BREAST CANCER
     Dosage: 250 MG Q4WK IM
     Route: 030
     Dates: start: 20040108, end: 20040304
  2. LOSEC [Concomitant]
  3. LIPITOR [Concomitant]
  4. ZOMETA [Concomitant]
  5. VOLTAREN [Concomitant]

REACTIONS (1)
  - TRANSIENT ISCHAEMIC ATTACK [None]
